FAERS Safety Report 24096974 (Version 1)
Quarter: 2024Q3

REPORT INFORMATION
  Report Type: Spontaneous
  Country: US (occurrence: US)
  Receive Date: 20240716
  Receipt Date: 20240716
  Transmission Date: 20241017
  Serious: No
  Sender: GRIFOLS
  Company Number: US-IGSA-BIG0028171

PATIENT
  Sex: Male

DRUGS (1)
  1. GAMUNEX-C [Suspect]
     Active Substance: HUMAN IMMUNOGLOBULIN G
     Indication: Product used for unknown indication
     Dosage: 900 MILLILITER, UNKNOWN
     Route: 065
     Dates: start: 2022

REACTIONS (3)
  - Pollakiuria [Unknown]
  - Urine flow decreased [Unknown]
  - Muscle spasms [Unknown]
